FAERS Safety Report 19770669 (Version 1)
Quarter: 2021Q3

REPORT INFORMATION
  Report Type: Spontaneous
  Country: DE (occurrence: DE)
  Receive Date: 20210901
  Receipt Date: 20210901
  Transmission Date: 20211014
  Serious: Yes (Death, Other)
  Sender: FDA-Public Use
  Company Number: DE-TEVA-2021-DE-1947009

PATIENT
  Age: 63 Year
  Sex: Female

DRUGS (6)
  1. DOCETAXEL. [Suspect]
     Active Substance: DOCETAXEL
     Indication: CHOLANGIOCARCINOMA
     Route: 065
     Dates: start: 2019
  2. CISPLATIN. [Suspect]
     Active Substance: CISPLATIN
     Indication: CHOLANGIOCARCINOMA
     Route: 065
     Dates: start: 2018, end: 2019
  3. CISPLATIN. [Suspect]
     Active Substance: CISPLATIN
     Indication: CHOLANGIOCARCINOMA
  4. DOCETAXEL. [Suspect]
     Active Substance: DOCETAXEL
     Indication: CHOLANGIOCARCINOMA
  5. GEMCITABINE. [Suspect]
     Active Substance: GEMCITABINE
     Indication: CHOLANGIOCARCINOMA
     Route: 065
     Dates: start: 2018, end: 2019
  6. GEMCITABINE. [Suspect]
     Active Substance: GEMCITABINE
     Indication: CHOLANGIOCARCINOMA

REACTIONS (2)
  - Drug ineffective [Unknown]
  - Haematotoxicity [Unknown]

NARRATIVE: CASE EVENT DATE: 2018
